FAERS Safety Report 9786532 (Version 1)
Quarter: 2013Q4

REPORT INFORMATION
  Report Type: Spontaneous
  Country: DK (occurrence: FR)
  Receive Date: 20131227
  Receipt Date: 20131227
  Transmission Date: 20140711
  Serious: Yes (Hospitalization)
  Sender: FDA-Public Use
  Company Number: FR-FRI-1000052434

PATIENT
  Age: 18 Year
  Sex: Female

DRUGS (4)
  1. ESCITALOPRAM [Suspect]
     Route: 048
     Dates: start: 20131207
  2. STILNOX [Suspect]
     Dates: end: 20131204
  3. XEROQUEL [Suspect]
     Dates: end: 20131204
  4. MOCLAMINE [Suspect]
     Dates: end: 20131204

REACTIONS (3)
  - Urinary retention [Unknown]
  - Overdose [Unknown]
  - Labelled drug-drug interaction medication error [Unknown]
